FAERS Safety Report 18923873 (Version 2)
Quarter: 2021Q2

REPORT INFORMATION
  Report Type: Other
  Country: CA (occurrence: CA)
  Receive Date: 20210222
  Receipt Date: 20210616
  Transmission Date: 20210717
  Serious: Yes (Other)
  Sender: FDA-Public Use
  Company Number: CA-LUPIN PHARMACEUTICALS INC.-2021-01882

PATIENT
  Age: 68 Year
  Sex: Male
  Weight: 85 kg

DRUGS (2)
  1. REMICADE [Suspect]
     Active Substance: INFLIXIMAB
     Indication: CROHN^S DISEASE
     Dosage: 500 MILLIGRAM (ONE EVERY 5 WEEKS)
     Route: 042
  2. CEPHALEXIN. [Suspect]
     Active Substance: CEPHALEXIN
     Indication: WOUND INFECTION
     Dosage: UNK
     Route: 065

REACTIONS (4)
  - Intestinal haemorrhage [Unknown]
  - Skin laceration [Unknown]
  - Wound infection [Unknown]
  - Road traffic accident [Unknown]
